FAERS Safety Report 23565639 (Version 2)
Quarter: 2024Q2

REPORT INFORMATION
  Report Type: Other
  Country: CA (occurrence: CA)
  Receive Date: 20240226
  Receipt Date: 20240426
  Transmission Date: 20240716
  Serious: Yes (Other)
  Sender: FDA-Public Use
  Company Number: CA-APOTEX-2024AP002493

PATIENT
  Age: 71 Year
  Sex: Female

DRUGS (4)
  1. TORADOL [Suspect]
     Active Substance: KETOROLAC TROMETHAMINE
     Indication: Product used for unknown indication
     Dosage: UNK
     Route: 065
  2. LYRICA [Suspect]
     Active Substance: PREGABALIN
     Indication: Back pain
     Dosage: UNK, Q.O.D.
     Route: 065
  3. SIMPONI [Suspect]
     Active Substance: GOLIMUMAB
     Indication: Rheumatoid arthritis
     Dosage: 50 MILLIGRAM
     Route: 058
  4. SIMPONI [Suspect]
     Active Substance: GOLIMUMAB
     Dosage: 50 MILLIGRAM, Q.M.T.
     Route: 058

REACTIONS (17)
  - Back injury [Not Recovered/Not Resolved]
  - Balance disorder [Not Recovered/Not Resolved]
  - Inappropriate schedule of product administration [Not Recovered/Not Resolved]
  - Fall [Not Recovered/Not Resolved]
  - Iron deficiency anaemia [Not Recovered/Not Resolved]
  - Product dose omission issue [Not Recovered/Not Resolved]
  - Rash pruritic [Not Recovered/Not Resolved]
  - Rheumatoid arthritis [Not Recovered/Not Resolved]
  - Swelling [Not Recovered/Not Resolved]
  - Wheezing [Not Recovered/Not Resolved]
  - Weight decreased [Not Recovered/Not Resolved]
  - Cough [Not Recovered/Not Resolved]
  - Abdominal discomfort [Not Recovered/Not Resolved]
  - Pain [Not Recovered/Not Resolved]
  - Back pain [Not Recovered/Not Resolved]
  - Pyrexia [Not Recovered/Not Resolved]
  - Rash [Not Recovered/Not Resolved]
